FAERS Safety Report 25922230 (Version 2)
Quarter: 2025Q4

REPORT INFORMATION
  Report Type: Report from Study
  Country: US (occurrence: US)
  Receive Date: 20251015
  Receipt Date: 20251024
  Transmission Date: 20260118
  Serious: No
  Sender: JOHNSON AND JOHNSON
  Company Number: US-JNJFOC-20250938931

PATIENT
  Age: 62 Year
  Sex: Female

DRUGS (1)
  1. GUSELKUMAB [Suspect]
     Active Substance: GUSELKUMAB
     Indication: Product used for unknown indication
     Dosage: WEEK 0
     Route: 058

REACTIONS (6)
  - Physical product label issue [Unknown]
  - Injection site pain [Unknown]
  - Underdose [Unknown]
  - Eye pain [Unknown]
  - Hyperhidrosis [Unknown]
  - Headache [Unknown]
